FAERS Safety Report 9384931 (Version 2)
Quarter: 2013Q3

REPORT INFORMATION
  Report Type: Spontaneous
  Country: GB (occurrence: GB)
  Receive Date: 20130705
  Receipt Date: 20130815
  Transmission Date: 20140515
  Serious: Yes (Other)
  Sender: FDA-Public Use
  Company Number: GB-UCBSA-090520

PATIENT
  Age: 24 Month
  Sex: Female

DRUGS (2)
  1. KEPPRA [Suspect]
  2. EPILIM [Suspect]

REACTIONS (2)
  - Myoclonic epilepsy [Unknown]
  - Drug ineffective [Unknown]
